FAERS Safety Report 8089181-9 (Version None)
Quarter: 2012Q1

REPORT INFORMATION
  Report Type: 
  Country: None (occurrence: None)
  Receive Date: 20120128
  Receipt Date: 20110719
  Transmission Date: 20120608
  Serious: No
  Sender: FDA-Public Use
  Company Number: US-ABBOTT-11P-163-0732499-00

PATIENT
  Sex: Female
  Weight: 59.02 kg

DRUGS (13)
  1. ACTONEL [Concomitant]
     Indication: OSTEOPENIA
  2. GABAPENTIN [Concomitant]
     Indication: PAIN
  3. VITAMIN D [Concomitant]
     Dosage: 1000 UNITS ON TUES AND THURS
  4. ENALAPRIL [Concomitant]
     Indication: HYPERTENSION
     Dosage: 10 MG IN AM AND PM
  5. NEURONTIN [Suspect]
     Indication: PRODUCT USED FOR UNKNOWN INDICATION
     Dosage: 300 MG BID
  6. ACTONEL [Concomitant]
     Indication: OSTEOARTHRITIS
  7. ASCORBIC ACID [Concomitant]
     Indication: VITAMIN SUPPLEMENTATION
  8. CALCIUM + VITAMIN D [Concomitant]
     Indication: PRODUCT USED FOR UNKNOWN INDICATION
     Dosage: 600 MG BID
  9. VITAMIN D [Concomitant]
     Indication: PRODUCT USED FOR UNKNOWN INDICATION
     Dosage: 4000 UNITS ON MON, WED, FRI
  10. SIMVASTATIN [Concomitant]
     Indication: BLOOD CHOLESTEROL INCREASED
  11. NEURONTIN [Suspect]
     Dates: start: 20110501
  12. VITAMIN E [Concomitant]
     Indication: VITAMIN SUPPLEMENTATION
  13. HUMIRA [Suspect]
     Indication: PSORIASIS
     Dates: start: 20100601

REACTIONS (5)
  - ARTHRALGIA [None]
  - PSORIASIS [None]
  - DEPRESSION [None]
  - BACK PAIN [None]
  - POOR QUALITY SLEEP [None]
